FAERS Safety Report 16840717 (Version 2)
Quarter: 2022Q1

REPORT INFORMATION
  Report Type: Spontaneous
  Country: US (occurrence: US)
  Receive Date: 20190923
  Receipt Date: 20220206
  Transmission Date: 20220424
  Serious: Yes (Hospitalization)
  Sender: FDA-Public Use
  Company Number: US-JNJFOC-20190924958

PATIENT
  Age: 7 Decade
  Sex: Male

DRUGS (1)
  1. INVOKANA [Suspect]
     Active Substance: CANAGLIFLOZIN
     Indication: Product used for unknown indication
     Route: 048

REACTIONS (6)
  - Gangrene [Unknown]
  - Osteomyelitis [Unknown]
  - Necrosis [Unknown]
  - Cellulitis [Unknown]
  - Diabetic foot [Unknown]
  - Toe amputation [Unknown]

NARRATIVE: CASE EVENT DATE: 20160101
